FAERS Safety Report 6785509-8 (Version None)
Quarter: 2010Q2

REPORT INFORMATION
  Report Type: 
  Country: None (occurrence: None)
  Receive Date: 20100623
  Receipt Date: 20100617
  Transmission Date: 20101027
  Serious: Yes (Death)
  Sender: FDA-Public Use
  Company Number: US-CELGENEUS-163-21880-10061847

PATIENT
  Sex: Female

DRUGS (5)
  1. REVLIMID [Suspect]
     Indication: MULTIPLE MYELOMA
     Route: 048
     Dates: start: 20091101
  2. REVLIMID [Suspect]
     Route: 048
     Dates: start: 20061001
  3. REVLIMID [Suspect]
     Route: 048
     Dates: start: 20070701
  4. REVLIMID [Suspect]
     Route: 048
     Dates: start: 20080501
  5. REVLIMID [Suspect]
     Route: 048
     Dates: start: 20081001

REACTIONS (1)
  - DEATH [None]
